FAERS Safety Report 5513639-7 (Version None)
Quarter: 2007Q4

REPORT INFORMATION
  Report Type: 
  Country: None (occurrence: None)
  Receive Date: 20071108
  Receipt Date: 20071031
  Transmission Date: 20080405
  Serious: Yes (Other)
  Sender: FDA-Public Use
  Company Number: 2007-04904

PATIENT
  Age: 59 Year
  Sex: Female

DRUGS (4)
  1. ANDRODERM [Suspect]
     Indication: HYPOGONADISM MALE
     Dosage: TROCHE
     Dates: start: 20011101, end: 20030701
  2. PROGESTERONE IN OIL INJ [Suspect]
     Indication: HORMONE REPLACEMENT THERAPY
     Dosage: TROCHE
     Dates: start: 20011101, end: 20030701
  3. ESTRADIOL [Suspect]
     Indication: HORMONE REPLACEMENT THERAPY
     Dosage: TROCHE
     Dates: start: 20011101, end: 20030701
  4. DHEA(PRASTERONE) [Suspect]
     Indication: HORMONE REPLACEMENT THERAPY
     Dosage: TROCHE
     Dates: start: 20011101, end: 20030701

REACTIONS (1)
  - ENDOMETRIAL CANCER STAGE I [None]
